FAERS Safety Report 4515325-9 (Version None)
Quarter: 2004Q4

REPORT INFORMATION
  Report Type: 
  Country: None (occurrence: None)
  Receive Date: 20041126
  Receipt Date: 20041119
  Transmission Date: 20050328
  Serious: Yes (Hospitalization, Other)
  Sender: FDA-Public Use
  Company Number: HQWYE625122NOV04

PATIENT
  Age: 61 Year
  Sex: Female
  Weight: 98.97 kg

DRUGS (2)
  1. PREMARIN [Suspect]
     Indication: HORMONE REPLACEMENT THERAPY
     Dosage: 0.625 MG EVERY OTHER DAY, ORAL
     Route: 048
     Dates: start: 19900101, end: 20040707
  2. LISINOPRIL/HYDROCHLOROTHIAZIDE (LISINOPRIL/HYDROCHLOROTHIAZIDE) [Concomitant]

REACTIONS (4)
  - DRUG WITHDRAWAL SYNDROME [None]
  - GASTRIC ULCER PERFORATION [None]
  - HEART RATE INCREASED [None]
  - JOINT SWELLING [None]
